FAERS Safety Report 16806602 (Version 1)
Quarter: 2019Q3

REPORT INFORMATION
  Report Type: Spontaneous
  Country: US (occurrence: US)
  Receive Date: 20190913
  Receipt Date: 20190913
  Transmission Date: 20191005
  Serious: No
  Sender: FDA-Public Use
  Company Number: US-SA-2019SA254662

PATIENT
  Age: 59 Year
  Sex: Female

DRUGS (8)
  1. LISINOPRIL. [Concomitant]
     Active Substance: LISINOPRIL
  2. ADAPT [Concomitant]
  3. ADRENOGEN [Concomitant]
  4. PREGNENOLONE [Concomitant]
     Active Substance: PREGNENOLONE
  5. NORVASC [Concomitant]
     Active Substance: AMLODIPINE BESYLATE
  6. PROGESTERONE. [Concomitant]
     Active Substance: PROGESTERONE
  7. ZOLPIDEM [Concomitant]
     Active Substance: ZOLPIDEM TARTRATE
  8. PRALUENT [Suspect]
     Active Substance: ALIROCUMAB
     Indication: HYPERLIPIDAEMIA
     Dosage: 75 MG, QOW
     Route: 058
     Dates: start: 20190815

REACTIONS (1)
  - Anal pruritus [Unknown]

NARRATIVE: CASE EVENT DATE: 2019
